FAERS Safety Report 25940379 (Version 1)
Quarter: 2025Q4

REPORT INFORMATION
  Report Type: Spontaneous
  Country: US (occurrence: None)
  Receive Date: 20251017
  Receipt Date: 20251017
  Transmission Date: 20260118
  Serious: Yes (Hospitalization)
  Sender: FDA-CTU
  Company Number: None

PATIENT
  Age: 69 Year
  Sex: Male

DRUGS (10)
  1. CAPECITABINE [Suspect]
     Active Substance: CAPECITABINE
     Indication: Rectal cancer
     Dosage: FREQUENCY : TWICE A DAY;?
     Route: 048
     Dates: start: 20250916, end: 20250930
  2. SERTRALINE HYDROCHLORIDE [Concomitant]
     Active Substance: SERTRALINE HYDROCHLORIDE
  3. LOSARTAN [Concomitant]
     Active Substance: LOSARTAN
  4. Lomotil 2.5mg [Concomitant]
  5. Lansoprazole ODT 30mg [Concomitant]
  6. MIDODRINE [Concomitant]
     Active Substance: MIDODRINE
  7. FAMOTIDINE [Concomitant]
     Active Substance: FAMOTIDINE
  8. ONDANSETRON [Concomitant]
     Active Substance: ONDANSETRON
  9. Prochlorperazine 10mg [Concomitant]
  10. CEPHALEXIN [Concomitant]
     Active Substance: CEPHALEXIN

REACTIONS (2)
  - Nausea [None]
  - Diarrhoea [None]

NARRATIVE: CASE EVENT DATE: 20251001
